FAERS Safety Report 14498731 (Version 3)
Quarter: 2018Q2

REPORT INFORMATION
  Report Type: Spontaneous
  Country: US (occurrence: US)
  Receive Date: 20180207
  Receipt Date: 20180525
  Transmission Date: 20180711
  Serious: Yes (Death, Other)
  Sender: FDA-Public Use
  Company Number: US-PFIZER INC-2018053770

PATIENT
  Age: 10 Month
  Sex: Female
  Weight: 8.16 kg

DRUGS (3)
  1. GENOTROPIN MQ [Suspect]
     Active Substance: SOMATROPIN
     Indication: GROWTH RETARDATION
  2. LEVOTHYROXINE. [Concomitant]
     Active Substance: LEVOTHYROXINE
     Indication: HYPOTHYROIDISM
     Dosage: 25MCG ONCE A DAY VIA G-TUBE
     Dates: start: 2017
  3. GENOTROPIN MQ [Suspect]
     Active Substance: SOMATROPIN
     Indication: PRADER-WILLI SYNDROME
     Dosage: 0.2 MG, 1X/DAY(NIGHTLY )
     Route: 058
     Dates: start: 20171213

REACTIONS (6)
  - Dyspnoea [Unknown]
  - Urinary tract infection [Unknown]
  - Sudden infant death syndrome [Fatal]
  - Pneumonia [Unknown]
  - Respiratory tract congestion [Unknown]
  - Diarrhoea [Unknown]

NARRATIVE: CASE EVENT DATE: 20180204
